FAERS Safety Report 10056046 (Version 1)
Quarter: 2014Q2

REPORT INFORMATION
  Report Type: Spontaneous
  Country: US (occurrence: US)
  Receive Date: 20140403
  Receipt Date: 20140403
  Transmission Date: 20141212
  Serious: No
  Sender: FDA-Public Use
  Company Number: US-009507513-1403USA011393

PATIENT
  Sex: Female
  Weight: 88.89 kg

DRUGS (1)
  1. IMPLANON [Suspect]
     Indication: CONTRACEPTION
     Dosage: UNK
     Route: 059
     Dates: start: 20120328

REACTIONS (2)
  - Chest pain [Not Recovered/Not Resolved]
  - Dizziness [Not Recovered/Not Resolved]
